FAERS Safety Report 12202171 (Version 3)
Quarter: 2017Q1

REPORT INFORMATION
  Report Type: Spontaneous
  Country: GB (occurrence: GB)
  Receive Date: 20160323
  Receipt Date: 20170118
  Transmission Date: 20170428
  Serious: Yes (Other)
  Sender: FDA-Public Use
  Company Number: GB-BRISTOL-MYERS SQUIBB COMPANY-BMS-2016-018020

PATIENT
  Age: 53 Year
  Sex: Female

DRUGS (2)
  1. YERVOY [Suspect]
     Active Substance: IPILIMUMAB
     Indication: MALIGNANT MELANOMA
     Dosage: 1 DF, UNK
     Route: 041
     Dates: start: 201103
  2. YERVOY [Suspect]
     Active Substance: IPILIMUMAB
     Indication: PRODUCT USED FOR UNKNOWN INDICATION
     Dosage: 1 DF, UNK
     Route: 041
     Dates: start: 20110511

REACTIONS (4)
  - Uveitis [Recovered/Resolved]
  - Bladder disorder [Recovered/Resolved]
  - Drug ineffective [Unknown]
  - Cystoid macular oedema [Recovered/Resolved]

NARRATIVE: CASE EVENT DATE: 201112
